FAERS Safety Report 7905379-1 (Version None)
Quarter: 2011Q4

REPORT INFORMATION
  Report Type: 
  Country: None (occurrence: None)
  Receive Date: 20111109
  Receipt Date: 20111031
  Transmission Date: 20120403
  Serious: Yes (Other)
  Sender: FDA-Public Use
  Company Number: US-ASTRAZENECA-2011SE57690

PATIENT
  Age: 65 Year
  Sex: Male

DRUGS (2)
  1. NEXIUM [Suspect]
     Route: 048
  2. CHANTIX [Suspect]
     Indication: SMOKING CESSATION THERAPY
     Dates: end: 20110701

REACTIONS (3)
  - CARDIAC FAILURE [None]
  - DYSPNOEA [None]
  - CEREBROVASCULAR ACCIDENT [None]
